FAERS Safety Report 6079607-4 (Version None)
Quarter: 2009Q1

REPORT INFORMATION
  Report Type: 
  Country: None (occurrence: None)
  Receive Date: 20090217
  Receipt Date: 20090210
  Transmission Date: 20090719
  Serious: Yes (Other)
  Sender: FDA-Public Use
  Company Number: GB-WYE-G03094009

PATIENT
  Age: 51 Year
  Sex: Male

DRUGS (12)
  1. EFFEXOR XR [Suspect]
     Indication: ANXIETY
     Dosage: 225 MG (FREQUENCY UNKNOWN)
     Dates: end: 20081101
  2. EFFEXOR XR [Suspect]
     Indication: DEPRESSION
  3. DIAZEPAM [Suspect]
     Indication: ANXIETY
     Dosage: 2 MG (FREQUENCY UNKNOWN)
     Dates: end: 20081101
  4. DIAZEPAM [Suspect]
     Indication: DEPRESSION
  5. OLANZAPINE [Suspect]
     Indication: ANXIETY
     Dosage: 10 MG (FREQUENCY UNKNOWN)
     Dates: end: 20081101
  6. OLANZAPINE [Suspect]
     Indication: DEPRESSION
  7. CITALOPRAM HYDROBROMIDE [Suspect]
     Indication: ANXIETY
     Dosage: 40 MG (FREQUENCY UNKNOWN)
     Dates: end: 20081101
  8. CITALOPRAM HYDROBROMIDE [Suspect]
     Indication: DEPRESSION
  9. FLUOXETINE HCL [Suspect]
     Indication: ANXIETY
     Dosage: 60 MG (FREQUENCY UNKNOWN)
     Dates: end: 20081101
  10. FLUOXETINE HCL [Suspect]
     Indication: DEPRESSION
  11. IMIPRAMINE [Suspect]
     Indication: ANXIETY
     Dosage: UNKNOWN
     Dates: end: 20081101
  12. IMIPRAMINE [Suspect]
     Indication: DEPRESSION

REACTIONS (10)
  - ASTHENIA [None]
  - BALANCE DISORDER [None]
  - CLUMSINESS [None]
  - DYSPHAGIA [None]
  - EYE MOVEMENT DISORDER [None]
  - MENTAL DISORDER [None]
  - MUSCLE SPASMS [None]
  - SALIVARY HYPERSECRETION [None]
  - SPEECH DISORDER [None]
  - WEIGHT DECREASED [None]
